FAERS Safety Report 10156448 (Version 2)
Quarter: 2014Q2

REPORT INFORMATION
  Report Type: Spontaneous
  Country: US (occurrence: US)
  Receive Date: 20140507
  Receipt Date: 20140516
  Transmission Date: 20141212
  Serious: No
  Sender: FDA-Public Use
  Company Number: US-009507513-1404USA011299

PATIENT
  Age: 74 Year
  Sex: Male
  Weight: 89.8 kg

DRUGS (1)
  1. OXYTROL FOR WOMEN [Suspect]
     Indication: URINARY TRACT DISORDER
     Dosage: UNK, Q4D
     Route: 062
     Dates: start: 20140329, end: 20140410

REACTIONS (2)
  - Off label use [Unknown]
  - Drug ineffective [Unknown]
